FAERS Safety Report 9578536 (Version 1)
Quarter: 2013Q4

REPORT INFORMATION
  Report Type: Spontaneous
  Country: US (occurrence: US)
  Receive Date: 20131001
  Receipt Date: 20131001
  Transmission Date: 20140711
  Serious: No
  Sender: FDA-Public Use
  Company Number: US-AMGEN-USASP2013013786

PATIENT
  Age: 55 Year
  Sex: Female
  Weight: 92.97 kg

DRUGS (5)
  1. ENBREL [Suspect]
     Indication: RHEUMATOID ARTHRITIS
     Dosage: 50 MG, QWK
     Route: 058
  2. FOLIC ACID [Concomitant]
     Dosage: 1 MG, UNK
  3. METHOTREXATE [Concomitant]
     Dosage: 2.5 MG, UNK
  4. FLUTICASONE                        /00972202/ [Concomitant]
     Dosage: 50 MUG, UNK SPR
  5. LISINOPLUS [Concomitant]
     Dosage: 20-12.5 UNK

REACTIONS (1)
  - Nasopharyngitis [Unknown]
